FAERS Safety Report 20584064 (Version 1)
Quarter: 2022Q1

REPORT INFORMATION
  Report Type: Other
  Country: US (occurrence: US)
  Receive Date: 20220311
  Receipt Date: 20220311
  Transmission Date: 20220423
  Serious: Yes (Hospitalization)
  Sender: FDA-Public Use
  Company Number: US-UROVANT SCIENCES GMBH-202203-URV-000247

PATIENT
  Sex: Female

DRUGS (1)
  1. GEMTESA [Suspect]
     Active Substance: VIBEGRON
     Indication: Hypertonic bladder
     Dosage: 75 MG, QD
     Route: 048

REACTIONS (6)
  - Headache [Unknown]
  - Diplopia [Unknown]
  - Blood sodium decreased [Unknown]
  - Optic nerve injury [Unknown]
  - Headache [Unknown]
  - Vision blurred [Unknown]
